FAERS Safety Report 13096861 (Version 1)
Quarter: 2017Q1

REPORT INFORMATION
  Report Type: Spontaneous
  Country: US (occurrence: US)
  Receive Date: 20170106
  Receipt Date: 20170106
  Transmission Date: 20170428
  Serious: Yes (Other)
  Sender: FDA-Public Use
  Company Number: None

PATIENT
  Age: 58 Year
  Sex: Female
  Weight: 72 kg

DRUGS (1)
  1. CREST PRO-HEALTH FOR LIFE (CETYLPYRIDINIUM CHLORIDE) [Suspect]
     Active Substance: CETYLPYRIDINIUM CHLORIDE
     Indication: GINGIVITIS
     Dates: start: 20170101, end: 20170102

REACTIONS (6)
  - Glossodynia [None]
  - Mouth injury [None]
  - Tongue injury [None]
  - Ageusia [None]
  - Hypoaesthesia oral [None]
  - Tongue haemorrhage [None]

NARRATIVE: CASE EVENT DATE: 20170102
